FAERS Safety Report 7393721-2 (Version None)
Quarter: 2011Q2

REPORT INFORMATION
  Report Type: 
  Country: None (occurrence: None)
  Receive Date: 20110405
  Receipt Date: 20110328
  Transmission Date: 20111010
  Serious: Yes (Death)
  Sender: FDA-Public Use
  Company Number: IT-JNJFOC-20110300518

PATIENT
  Sex: Female

DRUGS (5)
  1. INVEGA [Suspect]
     Route: 048
  2. ZOLOFT [Suspect]
     Indication: PRODUCT USED FOR UNKNOWN INDICATION
     Route: 048
  3. ZOLOFT [Suspect]
     Route: 048
  4. INVEGA [Suspect]
     Indication: PRODUCT USED FOR UNKNOWN INDICATION
     Dosage: MAINTENANCE THERAPY IN THE MORNING
     Route: 048
  5. INVEGA [Suspect]
     Route: 048

REACTIONS (2)
  - INTENTIONAL OVERDOSE [None]
  - COMPLETED SUICIDE [None]
